FAERS Safety Report 10551256 (Version 1)
Quarter: 2014Q4

REPORT INFORMATION
  Report Type: Spontaneous
  Country: TR (occurrence: None)
  Receive Date: 20141027
  Receipt Date: 20141027
  Transmission Date: 20150529
  Serious: Yes (Death, Other)
  Sender: FDA-Public Use
  Company Number: TR-ZYDUS-005283

PATIENT

DRUGS (2)
  1. METFORMIN [Suspect]
     Active Substance: METFORMIN HYDROCHLORIDE
  2. NATEGLINIDE. [Suspect]
     Active Substance: NATEGLINIDE

REACTIONS (3)
  - Lactic acidosis [None]
  - Toxicity to various agents [None]
  - Multi-organ failure [None]
